FAERS Safety Report 15103888 (Version 3)
Quarter: 2021Q2

REPORT INFORMATION
  Report Type: Report from Study
  Country: CA (occurrence: CA)
  Receive Date: 20180703
  Receipt Date: 20210515
  Transmission Date: 20210716
  Serious: Yes (Death, Other)
  Sender: FDA-Public Use
  Company Number: PHHY2010CA25817

PATIENT
  Age: 74 Year
  Sex: Female

DRUGS (8)
  1. SANDOSTATIN LAR DEPOT [Suspect]
     Active Substance: OCTREOTIDE ACETATE
     Dosage: 30 MG, QMO
     Route: 030
  2. SANDOSTATIN LAR DEPOT [Suspect]
     Active Substance: OCTREOTIDE ACETATE
     Dosage: 20 MG, QMO
     Route: 030
  3. SANDOSTATIN LAR DEPOT [Suspect]
     Active Substance: OCTREOTIDE ACETATE
     Dosage: 10 MG, QMO
     Route: 030
     Dates: start: 20191114
  4. CODEINE PHOSPHATE [Suspect]
     Active Substance: CODEINE PHOSPHATE
     Indication: PRODUCT USED FOR UNKNOWN INDICATION
     Dosage: UNK
     Route: 065
  5. CABERGOLINE. [Concomitant]
     Active Substance: CABERGOLINE
     Indication: PRODUCT USED FOR UNKNOWN INDICATION
     Dosage: 5 MG, BID
     Route: 065
     Dates: start: 2010
  6. SANDOSTATIN LAR DEPOT [Suspect]
     Active Substance: OCTREOTIDE ACETATE
     Indication: ACROMEGALY
     Dosage: 20 MG, QMO
     Route: 030
     Dates: start: 20031209
  7. SANDOSTATIN LAR DEPOT [Suspect]
     Active Substance: OCTREOTIDE ACETATE
     Dosage: 30 MG, QMO
     Route: 030
  8. SANDOSTATIN LAR DEPOT [Suspect]
     Active Substance: OCTREOTIDE ACETATE
     Dosage: 10 MG, QMO
     Route: 030
     Dates: start: 20150805

REACTIONS (11)
  - B-cell lymphoma [Unknown]
  - Dementia [Unknown]
  - Feeling hot [Unknown]
  - Blood pressure systolic increased [Unknown]
  - Blood pressure increased [Unknown]
  - Oropharyngeal pain [Unknown]
  - Hyperglycaemia [Unknown]
  - Melanocytic naevus [Unknown]
  - Death [Fatal]
  - Heart rate decreased [Unknown]
  - Erythema [Unknown]

NARRATIVE: CASE EVENT DATE: 20131127
